FAERS Safety Report 5778727-9 (Version None)
Quarter: 2008Q2

REPORT INFORMATION
  Report Type: 
  Country: None (occurrence: None)
  Receive Date: 20080618
  Receipt Date: 20080618
  Transmission Date: 20081010
  Serious: Yes (Other)
  Sender: FDA-Public Use
  Company Number: None

PATIENT
  Age: 51 Year
  Sex: Female
  Weight: 68.0396 kg

DRUGS (2)
  1. INVEGA [Suspect]
     Indication: DEPRESSION
     Dosage: 3 MG 1 DAILY PO
     Dates: start: 20080605, end: 20080616
  2. INVEGA [Suspect]
     Indication: EATING DISORDER
     Dosage: 3 MG 1 DAILY PO
     Dates: start: 20080605, end: 20080616

REACTIONS (3)
  - HEADACHE [None]
  - TEMPERATURE INTOLERANCE [None]
  - TREMOR [None]
